FAERS Safety Report 8354302-7 (Version None)
Quarter: 2012Q2

REPORT INFORMATION
  Report Type: 
  Country: None (occurrence: None)
  Receive Date: 20120511
  Receipt Date: 20120504
  Transmission Date: 20120825
  Serious: Yes (Hospitalization)
  Sender: FDA-Public Use
  Company Number: US-BAYER-2011-107455

PATIENT
  Age: 16 Year
  Sex: Female
  Weight: 50 kg

DRUGS (8)
  1. TAGAMET [Concomitant]
     Dosage: UNK
     Dates: start: 20091231
  2. YAZ [Suspect]
     Indication: CONTRACEPTION
     Dosage: UNK
     Route: 048
     Dates: start: 20050101, end: 20090101
  3. PENICILLIN [Concomitant]
  4. PRILOSEC [Concomitant]
  5. YAZ [Suspect]
     Indication: MENSTRUAL CYCLE MANAGEMENT
  6. ALLEGRA [Concomitant]
     Dosage: UNK
     Dates: start: 20070406
  7. IBUPROFEN [Concomitant]
  8. MINOCYCLINE HCL [Concomitant]

REACTIONS (6)
  - MEDICAL DIET [None]
  - EMOTIONAL DISTRESS [None]
  - PAIN [None]
  - ANXIETY [None]
  - CHOLECYSTITIS [None]
  - MUSCLE SPASMS [None]
